FAERS Safety Report 5028123-7 (Version None)
Quarter: 2006Q2

REPORT INFORMATION
  Report Type: 
  Country: None (occurrence: None)
  Receive Date: 20060613
  Receipt Date: 20060602
  Transmission Date: 20061013
  Serious: Yes (Hospitalization)
  Sender: FDA-Public Use
  Company Number: US-2006-013836

PATIENT
  Age: 30 Year
  Sex: Female

DRUGS (1)
  1. MIRENA [Suspect]
     Dosage: 20 UG/DAY, CONT, INTRA-UTERINE
     Route: 015
     Dates: start: 20060412, end: 20060418

REACTIONS (4)
  - BLADDER PERFORATION [None]
  - IUCD COMPLICATION [None]
  - IUD MIGRATION [None]
  - UTERINE PERFORATION [None]
